FAERS Safety Report 20141704 (Version 1)
Quarter: 2021Q4

REPORT INFORMATION
  Report Type: Spontaneous
  Country: JP (occurrence: JP)
  Receive Date: 20211202
  Receipt Date: 20211202
  Transmission Date: 20220303
  Serious: Yes (Hospitalization, Other)
  Sender: FDA-Public Use
  Company Number: JP-TEVA-2021-JP-1982106

PATIENT
  Sex: Male

DRUGS (3)
  1. PREDNISOLONE [Suspect]
     Active Substance: PREDNISOLONE
     Indication: Systemic lupus erythematosus
     Dosage: 10 MILLIGRAM DAILY;
     Route: 065
  2. METHOTREXATE [Suspect]
     Active Substance: METHOTREXATE
     Indication: Systemic lupus erythematosus
     Route: 065
  3. TACROLIMUS [Suspect]
     Active Substance: TACROLIMUS
     Indication: Systemic lupus erythematosus
     Route: 065

REACTIONS (16)
  - Urinary tract infection [Unknown]
  - Cytomegalovirus infection [Unknown]
  - Gastric ulcer [Unknown]
  - Osteomyelitis [Unknown]
  - Skin ulcer [Unknown]
  - Staphylococcal infection [Recovering/Resolving]
  - Aortic aneurysm [Recovering/Resolving]
  - Acute kidney injury [Recovering/Resolving]
  - Sepsis [Recovering/Resolving]
  - Staphylococcal infection [Recovering/Resolving]
  - Septic shock [Recovering/Resolving]
  - Infective aneurysm [Recovering/Resolving]
  - Intervertebral discitis [Recovering/Resolving]
  - Abscess [Recovering/Resolving]
  - Deep vein thrombosis [Recovering/Resolving]
  - Decubitus ulcer [Recovering/Resolving]
